FAERS Safety Report 16000616 (Version 2)
Quarter: 2019Q2

REPORT INFORMATION
  Report Type: Spontaneous
  Country: US (occurrence: US)
  Receive Date: 20190225
  Receipt Date: 20190416
  Transmission Date: 20190711
  Serious: No
  Sender: FDA-Public Use
  Company Number: US-LEXICON PHARMACEUTICALS, INC-19-1606-00148

PATIENT
  Sex: Male

DRUGS (10)
  1. DIPHENOXYLATE [Concomitant]
     Active Substance: DIPHENOXYLATE
  2. LISINOPRIL. [Concomitant]
     Active Substance: LISINOPRIL
  3. LOPERAMIDE [Concomitant]
     Active Substance: LOPERAMIDE
  4. LACTOBACILLUS [Concomitant]
     Active Substance: LACTOBACILLUS ACIDOPHILUS
  5. SANDOSTATIN [Concomitant]
     Active Substance: OCTREOTIDE ACETATE
  6. ATENOLOL. [Concomitant]
     Active Substance: ATENOLOL
  7. PANTOPRAZOLE SODIUM. [Concomitant]
     Active Substance: PANTOPRAZOLE SODIUM
  8. CETIRIZINE [Concomitant]
     Active Substance: CETIRIZINE HYDROCHLORIDE
  9. TELOTRISTAT ETHYL [Suspect]
     Active Substance: TELOTRISTAT ETHYL
     Indication: CARCINOID TUMOUR
     Route: 048
     Dates: start: 20181020
  10. OPIUM. [Concomitant]
     Active Substance: OPIUM

REACTIONS (3)
  - Vomiting [Unknown]
  - Abdominal pain [Unknown]
  - Constipation [Unknown]
